FAERS Safety Report 6174074-4 (Version None)
Quarter: 2009Q2

REPORT INFORMATION
  Report Type: 
  Country: None (occurrence: None)
  Receive Date: 20090430
  Receipt Date: 20080311
  Transmission Date: 20091009
  Serious: Yes (Other)
  Sender: FDA-Public Use
  Company Number: US-ASTRAZENECA-2008UW04954

PATIENT
  Age: 53 Year
  Sex: Male

DRUGS (5)
  1. NEXIUM [Suspect]
     Indication: GASTRITIS
     Route: 048
     Dates: start: 20080201
  2. NEXIUM [Suspect]
     Indication: INFLAMMATION
     Route: 048
     Dates: start: 20080201
  3. ALOE VERA [Concomitant]
  4. MAGNESIUM POWDER CALLED CALM [Concomitant]
  5. TUMS [Concomitant]

REACTIONS (3)
  - DRUG INEFFECTIVE [None]
  - HYPOAESTHESIA [None]
  - NERVOUS SYSTEM DISORDER [None]
